FAERS Safety Report 6752817-6 (Version None)
Quarter: 2010Q2

REPORT INFORMATION
  Report Type: 
  Country: None (occurrence: None)
  Receive Date: 20100603
  Receipt Date: 20100520
  Transmission Date: 20101027
  Serious: Yes (Other)
  Sender: FDA-Public Use
  Company Number: ES-BIOGENIDEC-2010BI005540

PATIENT
  Age: 28 Year
  Sex: Female

DRUGS (3)
  1. TYSABRI [Suspect]
     Indication: MULTIPLE SCLEROSIS
     Route: 042
  2. LYRICA [Concomitant]
  3. TEGRETOL [Concomitant]

REACTIONS (2)
  - HAEMOLYTIC ANAEMIA [None]
  - MULTIPLE SCLEROSIS RELAPSE [None]
